FAERS Safety Report 8177727-1 (Version None)
Quarter: 2012Q1

REPORT INFORMATION
  Report Type: 
  Country: None (occurrence: None)
  Receive Date: 20120301
  Receipt Date: 20120227
  Transmission Date: 20120608
  Serious: Yes (Death)
  Sender: FDA-Public Use
  Company Number: PHEH2012US004518

PATIENT
  Sex: Male
  Weight: 97 kg

DRUGS (16)
  1. VOTRIENT [Suspect]
     Dosage: 200 MG, TWO TAB EVERY DAY
  2. DECADRON [Concomitant]
     Dosage: 0.5 MG, UNK
  3. DOXYCILIN [Concomitant]
     Dosage: 150 MG, UNK
  4. ERLOTINIB HYDROCHLORIDE [Concomitant]
     Indication: GLIOMA
     Dosage: 150 MG, DAILY
     Route: 048
     Dates: start: 20111128, end: 20120113
  5. AFINITOR [Suspect]
     Dosage: UNK UKN, UNK
  6. AFINITOR [Suspect]
     Dosage: 5 MG, EVERY DAY
  7. SPRYCEL [Concomitant]
  8. VITAMIN D [Concomitant]
     Dosage: 500000 U, UNK
  9. DASATINIB [Concomitant]
     Indication: GLIOMA
     Dosage: 50 MG, UNK
     Route: 048
     Dates: start: 20111202, end: 20120113
  10. BACTRIM [Concomitant]
     Dosage: 400 MG, UNK
  11. PRILOSEC [Concomitant]
     Dosage: 20 MG, UNK
  12. SODIUM PHENYLBUTYRATE [Concomitant]
     Indication: GLIOMA
     Dosage: 3 G, QID
     Route: 048
     Dates: start: 20111128, end: 20120109
  13. COLACE [Concomitant]
  14. BACTRIM [Concomitant]
     Dosage: 80 MG, UNK
  15. TARCEVA [Concomitant]
     Dosage: 100 MG/H, UNK
  16. VOTRIENT [Concomitant]
     Indication: GLIOMA
     Dosage: 200 MG, QD
     Route: 048
     Dates: start: 20111001, end: 20120113

REACTIONS (3)
  - DEATH [None]
  - PANCYTOPENIA [None]
  - RASH [None]
